FAERS Safety Report 4661957-7 (Version None)
Quarter: 2005Q2

REPORT INFORMATION
  Report Type: 
  Country: None (occurrence: None)
  Receive Date: 20050511
  Receipt Date: 20050511
  Transmission Date: 20051028
  Serious: Yes (Hospitalization)
  Sender: FDA-Public Use
  Company Number: None

PATIENT
  Age: 79 Year
  Sex: Male

DRUGS (8)
  1. LISINOPRIL [Suspect]
     Indication: HYPERTENSION
     Dosage: 30 MG QD
     Dates: start: 19950401
  2. ISOSORBIDE [Suspect]
     Indication: ANAEMIA
     Dosage: 40  MG TID
     Dates: start: 19951001
  3. METOPROLOL SUCCINATE [Suspect]
     Dosage: 25 MG/BID
     Dates: start: 19980401
  4. ASPIRIN [Concomitant]
  5. FUROSEMIDE [Concomitant]
  6. NITROGLYCERIN [Concomitant]
  7. ZOCOR [Concomitant]
  8. SERTRALINE HCL [Concomitant]

REACTIONS (1)
  - SYNCOPE [None]
